FAERS Safety Report 7677487-4 (Version None)
Quarter: 2011Q3

REPORT INFORMATION
  Report Type: 
  Country: None (occurrence: None)
  Receive Date: 20110811
  Receipt Date: 20110810
  Transmission Date: 20111222
  Serious: Yes (Other)
  Sender: FDA-Public Use
  Company Number: CH-ABBOTT-11P-151-0843411-00

PATIENT
  Age: 66 Year
  Sex: Male

DRUGS (7)
  1. CLARITHROMYCIN [Interacting]
     Indication: STAPHYLOCOCCAL SEPSIS
     Route: 048
     Dates: start: 20110712, end: 20110714
  2. NEXIUM [Interacting]
     Indication: GASTROINTESTINAL DISORDER
     Route: 048
     Dates: start: 20110712, end: 20110715
  3. CLOPIDOGREL [Concomitant]
     Indication: PRODUCT USED FOR UNKNOWN INDICATION
     Route: 048
  4. ROCEPHIN [Suspect]
     Indication: STAPHYLOCOCCAL SEPSIS
     Route: 041
     Dates: start: 20110712, end: 20110714
  5. FELODIPINE [Concomitant]
     Indication: PRODUCT USED FOR UNKNOWN INDICATION
     Route: 048
  6. BUPRENORPHINE [Concomitant]
     Indication: PRODUCT USED FOR UNKNOWN INDICATION
     Route: 060
  7. METOPROLOL TARTRATE [Concomitant]
     Indication: PRODUCT USED FOR UNKNOWN INDICATION
     Route: 048

REACTIONS (4)
  - CHOLESTATIC LIVER INJURY [None]
  - LIVER FUNCTION TEST ABNORMAL [None]
  - PANCREATITIS [None]
  - DRUG INTERACTION [None]
